FAERS Safety Report 16529586 (Version 1)
Quarter: 2019Q3

REPORT INFORMATION
  Report Type: Spontaneous
  Country: GB (occurrence: GB)
  Receive Date: 20190703
  Receipt Date: 20190703
  Transmission Date: 20191004
  Serious: Yes (Life-Threatening, Hospitalization, Other)
  Sender: FDA-Public Use
  Company Number: GB-BAXTER-2019BAX012690

PATIENT
  Age: 18 Year
  Sex: Female
  Weight: 86 kg

DRUGS (4)
  1. BUPIVACAINE-CLARIS 5MG/ML SOLUTION FOR INJECTION [Suspect]
     Active Substance: BUPIVACAINE HYDROCHLORIDE
     Indication: PRODUCT USED FOR UNKNOWN INDICATION
     Dosage: GIVEN OVER 2-3 MINUTES.
     Route: 008
  2. BUPIVACAINE-CLARIS 5MG/ML SOLUTION FOR INJECTION [Suspect]
     Active Substance: BUPIVACAINE HYDROCHLORIDE
     Route: 008
  3. LIDOCAINE. [Concomitant]
     Active Substance: LIDOCAINE
     Indication: PRODUCT USED FOR UNKNOWN INDICATION
     Route: 008
  4. FENTANYL. [Concomitant]
     Active Substance: FENTANYL
     Indication: PRODUCT USED FOR UNKNOWN INDICATION
     Dosage: IN 6ML.
     Route: 008

REACTIONS (13)
  - Incorrect route of product administration [Unknown]
  - Heart rate decreased [Unknown]
  - Device dislocation [Unknown]
  - Agitation [Unknown]
  - Restlessness [Unknown]
  - Local anaesthetic systemic toxicity [Unknown]
  - Eclampsia [Unknown]
  - Muscle twitching [Unknown]
  - Seizure [Unknown]
  - Cerebral disorder [Unknown]
  - Hypertension [Recovered/Resolved]
  - Loss of consciousness [Recovered/Resolved]
  - Maternal exposure during pregnancy [Unknown]
